FAERS Safety Report 23807726 (Version 10)
Quarter: 2025Q2

REPORT INFORMATION
  Report Type: Report from Study
  Country: US (occurrence: US)
  Receive Date: 20240502
  Receipt Date: 20250605
  Transmission Date: 20250717
  Serious: Yes (Hospitalization, Other)
  Sender: TAKEDA
  Company Number: US-TAKEDA-2024TUS040679

PATIENT
  Age: 34 Year
  Sex: Female
  Weight: 79 kg

DRUGS (18)
  1. HUMAN IMMUNOGLOBULIN G [Suspect]
     Active Substance: HUMAN IMMUNOGLOBULIN G
     Indication: Immune system disorder
     Dosage: 35 GRAM, Q4WEEKS
     Dates: start: 20240422
  2. HUMAN IMMUNOGLOBULIN G [Suspect]
     Active Substance: HUMAN IMMUNOGLOBULIN G
     Indication: Hypergammaglobulinaemia
  3. ACETAMINOPHEN [Concomitant]
     Active Substance: ACETAMINOPHEN
  4. EPINEPHRINE [Concomitant]
     Active Substance: EPINEPHRINE
  5. SODIUM CHLORIDE [Concomitant]
     Active Substance: SODIUM CHLORIDE
  6. SODIUM CHLORIDE [Concomitant]
     Active Substance: SODIUM CHLORIDE
  7. ZOFRAN [Concomitant]
     Active Substance: ONDANSETRON HYDROCHLORIDE
  8. HUMIRA [Concomitant]
     Active Substance: ADALIMUMAB
  9. WIXELA INHUB [Concomitant]
     Active Substance: FLUTICASONE PROPIONATE\SALMETEROL XINAFOATE
  10. SIMETHICONE (DIMETHICONE) [Concomitant]
     Active Substance: DIMETHICONE
  11. HYDROXYCHLOROQUINE SULFATE [Concomitant]
     Active Substance: HYDROXYCHLOROQUINE SULFATE
  12. LIDOCAINE [Concomitant]
     Active Substance: LIDOCAINE
  13. MONTELUKAST SODIUM [Concomitant]
     Active Substance: MONTELUKAST SODIUM
  14. DIPHENHYDRAMINE HYDROCHLORIDE [Concomitant]
     Active Substance: DIPHENHYDRAMINE HYDROCHLORIDE
  15. CYCLOBENZAPRINE HYDROCHLORIDE [Concomitant]
     Active Substance: CYCLOBENZAPRINE HYDROCHLORIDE
  16. DIPHENHYDRAMINE [Concomitant]
     Active Substance: DIPHENHYDRAMINE
  17. DEXAMETHASONE [Concomitant]
     Active Substance: DEXAMETHASONE
  18. HEPARIN [Concomitant]
     Active Substance: HEPARIN SODIUM

REACTIONS (21)
  - Infusion related reaction [Unknown]
  - Meningitis [Unknown]
  - Incorrect drug administration rate [Unknown]
  - Allergy to surgical sutures [Unknown]
  - Head discomfort [Recovering/Resolving]
  - Blister [Unknown]
  - Discomfort [Unknown]
  - Diplopia [Unknown]
  - Gastrooesophageal reflux disease [Unknown]
  - Infected bite [Unknown]
  - Dermatitis contact [Unknown]
  - Vision blurred [Unknown]
  - Photophobia [Unknown]
  - Burning sensation [Unknown]
  - Infusion site erythema [Unknown]
  - Pain [Unknown]
  - Infusion site pruritus [Unknown]
  - Chest discomfort [Recovering/Resolving]
  - Pruritus [Recovering/Resolving]
  - Fatigue [Recovering/Resolving]
  - Headache [Unknown]

NARRATIVE: CASE EVENT DATE: 20240715
